FAERS Safety Report 26080062 (Version 1)
Quarter: 2025Q4

REPORT INFORMATION
  Report Type: Spontaneous
  Country: EU (occurrence: EU)
  Receive Date: 20251124
  Receipt Date: 20251124
  Transmission Date: 20260117
  Serious: Yes (Hospitalization)
  Sender: MERCK SHARP & DOHME LLC
  Company Number: EU-009507513-2350556

PATIENT
  Age: 63 Year
  Sex: Male

DRUGS (1)
  1. PEMBROLIZUMAB [Suspect]
     Active Substance: PEMBROLIZUMAB
     Indication: Malignant melanoma
     Dates: start: 202401

REACTIONS (3)
  - Acute kidney injury [Recovering/Resolving]
  - Adrenal insufficiency [Recovering/Resolving]
  - Bacterial infection [Unknown]

NARRATIVE: CASE EVENT DATE: 20240101
